FAERS Safety Report 9942432 (Version 1)
Quarter: 2014Q1

REPORT INFORMATION
  Report Type: Spontaneous
  Country: FR (occurrence: FR)
  Receive Date: 20140303
  Receipt Date: 20140303
  Transmission Date: 20141002
  Serious: Yes (Life-Threatening, Hospitalization)
  Sender: FDA-Public Use
  Company Number: FR-ACTAVIS-2014-03201

PATIENT
  Age: 28 Year
  Sex: Female

DRUGS (9)
  1. METHOTREXATE (UNKNOWN) [Suspect]
     Indication: NON-HODGKIN^S LYMPHOMA
     Dosage: 3 G/M^2,UNK
     Route: 042
  2. CIPROFLOXACIN HYDROCHLORIDE [Interacting]
     Indication: ANTIBIOTIC THERAPY
     Dosage: 500 MG, BID
     Route: 048
  3. SODIUM BICARBONATE [Suspect]
     Indication: ADJUVANT THERAPY
     Dosage: UNK
     Route: 042
  4. CEFOTAXIME [Concomitant]
     Indication: ANTIBIOTIC THERAPY
     Dosage: 1 G, TID
     Route: 042
  5. VALACYCLOVIR HYDROCHLORIDE [Concomitant]
     Indication: PROPHYLAXIS
     Dosage: 500 MG, BID
     Route: 065
  6. IFOSFAMIDE [Concomitant]
     Indication: NON-HODGKIN^S LYMPHOMA
     Dosage: UNK
     Route: 065
  7. ETOPOSIDE [Concomitant]
     Indication: NON-HODGKIN^S LYMPHOMA
     Dosage: UNK
     Route: 065
  8. CYTARABINE [Concomitant]
     Indication: NON-HODGKIN^S LYMPHOMA
     Dosage: UNK
     Route: 065
  9. CALCIUM FOLINATE [Concomitant]
     Indication: PRODUCT USED FOR UNKNOWN INDICATION
     Dosage: UNK
     Route: 042

REACTIONS (5)
  - Pancytopenia [Recovering/Resolving]
  - Mucosal inflammation [Unknown]
  - Diarrhoea [Unknown]
  - Skin lesion [Unknown]
  - Drug interaction [Unknown]
